FAERS Safety Report 22073422 (Version 1)
Quarter: 2023Q1

REPORT INFORMATION
  Report Type: Spontaneous
  Country: ES (occurrence: ES)
  Receive Date: 20230308
  Receipt Date: 20230308
  Transmission Date: 20230418
  Serious: Yes (Hospitalization, Other)
  Sender: FDA-Public Use
  Company Number: None

PATIENT
  Age: 92 Year
  Sex: Male

DRUGS (11)
  1. JENTADUETO [Suspect]
     Active Substance: LINAGLIPTIN\METFORMIN HYDROCHLORIDE
     Indication: Diabetic vascular disorder
     Route: 048
     Dates: start: 20211125, end: 20230223
  2. Hidroxizina 25 mg 25 comprimidos [Concomitant]
     Indication: Pruritus
     Route: 048
     Dates: start: 20230208
  3. DIPROGENTA 0,5 mg/g + 1 mg/g crema  , 1 tubo de 50 g [Concomitant]
     Indication: Prurigo
     Route: 061
     Dates: start: 20230208
  4. Donepezilo 10 mg 28 comprimidos bucodispersables/liotabs [Concomitant]
     Indication: Cognitive disorder
     Route: 048
     Dates: start: 20141218
  5. Bilastina 20 mg 20 comprimidos [Concomitant]
     Indication: Prurigo
     Route: 048
     Dates: start: 20230122
  6. Citalopram 10 mg comprimido [Concomitant]
     Indication: Cognitive disorder
     Route: 048
     Dates: start: 20191220
  7. Quetiapina 100 mg 60 comprimidos [Concomitant]
     Indication: Dementia
     Route: 048
     Dates: start: 20200618
  8. Paracetamol 1.000 mg 40 comprimidos [Concomitant]
     Indication: Osteoarthritis
     Route: 048
     Dates: start: 20120320
  9. Alprazolam 0,25 mg 30 comprimidos [Concomitant]
     Indication: Anxiety
     Route: 048
     Dates: start: 20110304
  10. ?cido acetilsalic?lico 100 mg 30 comprimidos [Concomitant]
     Indication: Cerebral infarction
     Route: 048
     Dates: start: 20191204
  11. Omeprazol 20 mg c?psula [Concomitant]
     Indication: Gastrooesophageal reflux disease
     Route: 048
     Dates: start: 20191220

REACTIONS (1)
  - Pemphigus [Recovering/Resolving]

NARRATIVE: CASE EVENT DATE: 20230223
